FAERS Safety Report 21342978 (Version 4)
Quarter: 2025Q2

REPORT INFORMATION
  Report Type: Report from Study
  Country: DE (occurrence: DE)
  Receive Date: 20220916
  Receipt Date: 20250425
  Transmission Date: 20250717
  Serious: Yes (Hospitalization, Other)
  Sender: PFIZER
  Company Number: DE-NOVPHSZ-PHHY2018DE078251

PATIENT
  Sex: Female

DRUGS (15)
  1. METHOTREXATE SODIUM [Suspect]
     Active Substance: METHOTREXATE SODIUM
     Indication: Rheumatoid arthritis
     Dates: start: 20160111
  2. METHOTREXATE SODIUM [Suspect]
     Active Substance: METHOTREXATE SODIUM
     Dates: start: 20160304
  3. METHOTREXATE SODIUM [Suspect]
     Active Substance: METHOTREXATE SODIUM
     Dates: start: 20160708
  4. METHOTREXATE SODIUM [Suspect]
     Active Substance: METHOTREXATE SODIUM
     Dates: start: 20170120
  5. METHOTREXATE SODIUM [Suspect]
     Active Substance: METHOTREXATE SODIUM
     Dates: start: 20170710
  6. METHOTREXATE SODIUM [Suspect]
     Active Substance: METHOTREXATE SODIUM
     Dates: start: 20180117
  7. ETANERCEPT [Suspect]
     Active Substance: ETANERCEPT
     Indication: Rheumatoid arthritis
     Dates: start: 201810, end: 201904
  8. ETANERCEPT [Suspect]
     Active Substance: ETANERCEPT
     Dates: start: 202202, end: 202203
  9. SIMPONI [Suspect]
     Active Substance: GOLIMUMAB
     Indication: Rheumatoid arthritis
     Dates: start: 201601, end: 201603
  10. RINVOQ [Suspect]
     Active Substance: UPADACITINIB
     Indication: Rheumatoid arthritis
     Route: 048
     Dates: start: 202007, end: 202012
  11. ORENCIA [Suspect]
     Active Substance: ABATACEPT
     Dates: start: 202311
  12. ERELZI [Suspect]
     Active Substance: ETANERCEPT-SZZS
     Indication: Rheumatoid arthritis
     Dates: start: 202203, end: 202207
  13. ERELZI [Suspect]
     Active Substance: ETANERCEPT-SZZS
     Dates: start: 202303, end: 202308
  14. ERELZI [Suspect]
     Active Substance: ETANERCEPT-SZZS
     Dates: start: 202308, end: 202311
  15. ERELZI [Suspect]
     Active Substance: ETANERCEPT-SZZS
     Dates: start: 202210, end: 202302

REACTIONS (15)
  - Pelvic floor muscle weakness [Not Recovered/Not Resolved]
  - Intervertebral disc protrusion [Recovered/Resolved]
  - Basal cell carcinoma [Unknown]
  - Cataract [Unknown]
  - Gastrointestinal infection [Unknown]
  - Urinary tract infection [Unknown]
  - Alopecia [Unknown]
  - Nausea [Unknown]
  - Hypertension [Unknown]
  - Intervertebral disc protrusion [Unknown]
  - Anal incontinence [Unknown]
  - Bronchitis [Recovered/Resolved]
  - Osteoarthritis [Unknown]
  - Rheumatoid lung [Unknown]
  - Constipation [Unknown]

NARRATIVE: CASE EVENT DATE: 20170207
